FAERS Safety Report 5873769-7 (Version None)
Quarter: 2008Q3

REPORT INFORMATION
  Report Type: 
  Country: None (occurrence: None)
  Receive Date: 20080904
  Receipt Date: 20080904
  Transmission Date: 20090109
  Serious: Yes (Hospitalization)
  Sender: FDA-Public Use
  Company Number: None

PATIENT
  Age: 71 Year
  Sex: Male
  Weight: 69 kg

DRUGS (10)
  1. NITROFURANTOIN [Suspect]
     Indication: CYSTITIS
     Dosage: 50MG DAILY ORAL
     Route: 048
     Dates: start: 20080227
  2. AMITRIPTYLINE HCL [Concomitant]
  3. SANCTURA [Concomitant]
  4. M.V.I. [Concomitant]
  5. ASPIRIN [Concomitant]
  6. LEVOTHYROXINE SODIUM [Concomitant]
  7. OCULAR [Concomitant]
  8. ELMIRON [Concomitant]
  9. BILBERRY [Concomitant]
  10. FISH OIL [Concomitant]

REACTIONS (10)
  - BLOOD PH INCREASED [None]
  - COUGH [None]
  - DYSPNOEA [None]
  - LUNG DISORDER [None]
  - LYMPHOCYTIC INFILTRATION [None]
  - OPPORTUNISTIC INFECTION [None]
  - PNEUMONIA [None]
  - PULMONARY EMBOLISM [None]
  - PULMONARY TOXICITY [None]
  - VIRAL INFECTION [None]
